FAERS Safety Report 7242822-8 (Version None)
Quarter: 2011Q1

REPORT INFORMATION
  Report Type: 
  Country: None (occurrence: None)
  Receive Date: 20110125
  Receipt Date: 20110113
  Transmission Date: 20110831
  Serious: Yes (Hospitalization, Other)
  Sender: FDA-Public Use
  Company Number: PHFR2011GB00455

PATIENT
  Sex: Female

DRUGS (1)
  1. CLOZARIL [Suspect]
     Indication: SCHIZOPHRENIA
     Dosage: UNK
     Route: 048
     Dates: start: 20000210

REACTIONS (6)
  - PNEUMONIA [None]
  - LOWER RESPIRATORY TRACT INFECTION [None]
  - ANXIETY [None]
  - ACUTE RESPIRATORY DISTRESS SYNDROME [None]
  - INFLUENZA [None]
  - DYSPNOEA [None]
